FAERS Safety Report 9600412 (Version 1)
Quarter: 2013Q4

REPORT INFORMATION
  Report Type: Spontaneous
  Country: US (occurrence: US)
  Receive Date: 20131004
  Receipt Date: 20131004
  Transmission Date: 20140711
  Serious: No
  Sender: FDA-Public Use
  Company Number: US-AMGEN-USASP2013033976

PATIENT
  Age: 57 Year
  Sex: Male
  Weight: 77.1 kg

DRUGS (5)
  1. ENBREL [Suspect]
     Indication: PRODUCT USED FOR UNKNOWN INDICATION
     Dosage: 50 MG, QWK
     Route: 058
  2. VITAMIN E                          /00110501/ [Concomitant]
     Dosage: 400 UNIT, UNK
  3. CLARITIN                           /00917501/ [Concomitant]
     Dosage: 10 MG, UNK
  4. VITAMIN D3 [Concomitant]
     Dosage: 400 UNIT, UNK
  5. VITAMIN C                          /00008001/ [Concomitant]
     Dosage: 500 MG, UNK

REACTIONS (4)
  - Pruritus [Unknown]
  - Eczema [Unknown]
  - Erythema [Unknown]
  - Skin discomfort [Unknown]
